FAERS Safety Report 13111753 (Version 4)
Quarter: 2017Q2

REPORT INFORMATION
  Report Type: Spontaneous
  Country: KR (occurrence: KR)
  Receive Date: 20170113
  Receipt Date: 20170419
  Transmission Date: 20170830
  Serious: Yes (Death, Hospitalization)
  Sender: FDA-Public Use
  Company Number: KR-AMGEN-KORSP2017004062

PATIENT
  Age: 62 Year
  Sex: Male

DRUGS (7)
  1. PEGFILGRASTIM [Suspect]
     Active Substance: PEGFILGRASTIM
     Indication: DIFFUSE LARGE B-CELL LYMPHOMA
     Dosage: 6 MG, CYCLE 4 DAY 3
     Route: 058
     Dates: start: 20161009, end: 20161009
  2. RITUXIMAB [Suspect]
     Active Substance: RITUXIMAB
     Indication: DIFFUSE LARGE B-CELL LYMPHOMA
     Dosage: 1400 MG, CYCLE 4 DAY 1
     Route: 058
     Dates: start: 20161007, end: 20161007
  3. RITUXIMAB [Suspect]
     Active Substance: RITUXIMAB
     Dosage: 1400 MG, CYCLE 4 DAY 1
     Route: 058
     Dates: start: 20160907, end: 20160907
  4. RAPAMUNE [Suspect]
     Active Substance: SIROLIMUS
     Indication: PRODUCT USED FOR UNKNOWN INDICATION
     Dosage: 2 MG, 2 IN 1 D (21 YEARS)
     Route: 048
     Dates: start: 1995
  5. BENDAMUSTINE [Suspect]
     Active Substance: BENDAMUSTINE
     Indication: DIFFUSE LARGE B-CELL LYMPHOMA
     Dosage: 167 MG/M2, CYCLE 4 DAY 1,2
     Route: 042
     Dates: start: 20161007, end: 20161008
  6. PEGFILGRASTIM [Suspect]
     Active Substance: PEGFILGRASTIM
     Dosage: 6 MG, CYCLE 4 DAY 3
     Route: 058
     Dates: start: 20160909, end: 20160909
  7. BENDAMUSTINE [Suspect]
     Active Substance: BENDAMUSTINE
     Dosage: 167 MG/M2, CYCLE 4 DAY 1,2
     Route: 042
     Dates: start: 20160907, end: 20160908

REACTIONS (3)
  - Platelet count decreased [Fatal]
  - Pneumonia [Fatal]
  - Anaemia [Recovered/Resolved]

NARRATIVE: CASE EVENT DATE: 20161003
